FAERS Safety Report 14653274 (Version 2)
Quarter: 2018Q2

REPORT INFORMATION
  Report Type: Spontaneous
  Country: US (occurrence: US)
  Receive Date: 20180319
  Receipt Date: 20180422
  Transmission Date: 20180711
  Serious: No
  Sender: FDA-Public Use
  Company Number: US-APOTEX-2018AP005455

PATIENT
  Sex: Female

DRUGS (1)
  1. FENTANYL. [Suspect]
     Active Substance: FENTANYL
     Indication: BACK INJURY
     Dosage: ONE PATCH EVERY 48 HOURS
     Route: 062
     Dates: start: 2016

REACTIONS (6)
  - Erythema [Unknown]
  - Dry skin [Unknown]
  - Blister [Unknown]
  - Rash [Unknown]
  - Product adhesion issue [Unknown]
  - Skin burning sensation [Unknown]

NARRATIVE: CASE EVENT DATE: 2016
